FAERS Safety Report 14737526 (Version 1)
Quarter: 2018Q2

REPORT INFORMATION
  Report Type: Spontaneous
  Country: US (occurrence: US)
  Receive Date: 20180409
  Receipt Date: 20180409
  Transmission Date: 20180711
  Serious: Yes (Other)
  Sender: FDA-Public Use
  Company Number: US-PFIZER INC-2018139719

PATIENT
  Age: 10 Year
  Sex: Male

DRUGS (3)
  1. DEXAMETHASONE. [Suspect]
     Active Substance: DEXAMETHASONE
     Indication: ASTHMA
     Dosage: UNK UNK, DAILY (NEBULIZED DEXAMETHASONE UP TO 4 MG/D)
     Route: 045
  2. METHYLPREDNISOLONE ACETATE. [Suspect]
     Active Substance: METHYLPREDNISOLONE ACETATE
     Indication: ASTHMA
     Dosage: UNK UNK, DAILY  (UP TO 120 MG/D)
     Route: 042
  3. PREDNISONE. [Suspect]
     Active Substance: PREDNISONE
     Indication: ASTHMA
     Dosage: UNK UNK, DAILY (UP TO 60 MG/D)
     Route: 048

REACTIONS (1)
  - Dementia [Recovering/Resolving]
